FAERS Safety Report 23407545 (Version 3)
Quarter: 2024Q1

REPORT INFORMATION
  Report Type: Spontaneous
  Country: US (occurrence: US)
  Receive Date: 20240117
  Receipt Date: 20240124
  Transmission Date: 20240409
  Serious: No
  Sender: FDA-Public Use
  Company Number: US-OPELLA-2024OHG001256

PATIENT
  Sex: Male

DRUGS (1)
  1. ICY HOT DRY [Suspect]
     Active Substance: MENTHOL
     Dosage: DOSAGE STRENGTH: 18.88 G/118 ML
     Route: 061

REACTIONS (3)
  - Drug ineffective [Unknown]
  - No adverse event [Unknown]
  - Product physical issue [Unknown]
